FAERS Safety Report 19447988 (Version 1)
Quarter: 2021Q2

REPORT INFORMATION
  Report Type: Spontaneous
  Country: US (occurrence: US)
  Receive Date: 20210621
  Receipt Date: 20210621
  Transmission Date: 20210717
  Serious: No
  Sender: FDA-Public Use
  Company Number: None

PATIENT
  Age: 49 Year
  Sex: Male
  Weight: 91 kg

DRUGS (1)
  1. ENOXAPARIN (EXOXAPARIN 100MG/ML INJ, SYRINGE, 1ML) [Suspect]
     Active Substance: ENOXAPARIN
     Dosage: ?          OTHER STRENGTH:100MG/ML, 1ML;?
     Route: 058
     Dates: start: 20210427, end: 20210506

REACTIONS (1)
  - Thrombosis [None]

NARRATIVE: CASE EVENT DATE: 20210505
